FAERS Safety Report 11391120 (Version 1)
Quarter: 2015Q3

REPORT INFORMATION
  Report Type: Spontaneous
  Country: GB (occurrence: None)
  Receive Date: 20150813
  Receipt Date: 20150813
  Transmission Date: 20151125
  Serious: Yes (Hospitalization, Other)
  Sender: FDA-Public Use
  Company Number: 2015GB0455

PATIENT
  Sex: Female

DRUGS (1)
  1. ANAKINRA (ANAKINRA) [Suspect]
     Active Substance: ANAKINRA
     Indication: STILL^S DISEASE ADULT ONSET

REACTIONS (4)
  - Breast cancer female [None]
  - Juvenile idiopathic arthritis [None]
  - Neutropenia [None]
  - Condition aggravated [None]
